FAERS Safety Report 10035504 (Version 2)
Quarter: 2014Q2

REPORT INFORMATION
  Report Type: Spontaneous
  Country: DE (occurrence: None)
  Receive Date: 20140321
  Receipt Date: 20140408
  Transmission Date: 20141212
  Serious: Yes (Disabling, Other)
  Sender: FDA-Public Use
  Company Number: 1403-0535

PATIENT
  Age: 82 Year
  Sex: Male

DRUGS (1)
  1. EYLEA [Suspect]
     Indication: PRODUCT USED FOR UNKNOWN INDICATION
     Dates: start: 20140214

REACTIONS (9)
  - Vitreous haemorrhage [None]
  - Hypotony of eye [None]
  - Corneal oedema [None]
  - Visual acuity reduced [None]
  - Blindness [None]
  - Corneal disorder [None]
  - Subretinal fibrosis [None]
  - Ciliary body disorder [None]
  - Vitreous floaters [None]
